FAERS Safety Report 17244749 (Version 2)
Quarter: 2020Q1

REPORT INFORMATION
  Report Type: Report from Study
  Country: None (occurrence: US)
  Receive Date: 20200107
  Receipt Date: 20200213
  Transmission Date: 20200409
  Serious: Yes (Other)
  Sender: FDA-Public Use
  Company Number: US-ABBVIE-20K-163-3219144-00

PATIENT
  Sex: Female
  Weight: 70.37 kg

DRUGS (8)
  1. HUMIRA [Suspect]
     Active Substance: ADALIMUMAB
     Indication: PSORIASIS
     Dosage: CITRATE FREE
     Route: 058
     Dates: start: 201905, end: 20191001
  2. BIOTIN [Concomitant]
     Active Substance: BIOTIN
     Indication: VITAMIN SUPPLEMENTATION
  3. ESTRACE [Concomitant]
     Active Substance: ESTRADIOL
     Indication: HORMONE LEVEL ABNORMAL
  4. VITAMIN B12 [Concomitant]
     Active Substance: CYANOCOBALAMIN
     Indication: VITAMIN SUPPLEMENTATION
  5. LAMICTAL [Concomitant]
     Active Substance: LAMOTRIGINE
     Indication: BIPOLAR DISORDER
  6. VITAMIN D3 [Concomitant]
     Active Substance: CHOLECALCIFEROL
     Indication: VITAMIN SUPPLEMENTATION
  7. VITAMIN E [Concomitant]
     Active Substance: .ALPHA.-TOCOPHEROL
     Indication: VITAMIN SUPPLEMENTATION
  8. CALCIUM [Concomitant]
     Active Substance: CALCIUM
     Indication: MINERAL SUPPLEMENTATION

REACTIONS (2)
  - Gastrooesophageal reflux disease [Not Recovered/Not Resolved]
  - Postoperative wound infection [Recovering/Resolving]
